FAERS Safety Report 16745115 (Version 1)
Quarter: 2019Q4

REPORT INFORMATION
  Report Type: Spontaneous
  Country: US (occurrence: US)
  Receive Date: 20190827
  Receipt Date: 20190827
  Transmission Date: 20200122
  Serious: Yes (Life-Threatening, Disabling)
  Sender: FDA-Public Use
  Company Number: None

PATIENT
  Age: 45 Year
  Sex: Male
  Weight: 89.1 kg

DRUGS (1)
  1. HGH GEL NEW U LIVE [Suspect]
     Active Substance: HOMEOPATHICS
     Indication: PRODUCT USED FOR UNKNOWN INDICATION
     Route: 061
     Dates: start: 20181001, end: 20190125

REACTIONS (4)
  - Head and neck cancer stage IV [None]
  - Dizziness [None]
  - Nausea [None]
  - Headache [None]

NARRATIVE: CASE EVENT DATE: 20190125
